FAERS Safety Report 15549335 (Version 1)
Quarter: 2018Q4

REPORT INFORMATION
  Report Type: Spontaneous
  Country: FR (occurrence: FR)
  Receive Date: 20181025
  Receipt Date: 20181025
  Transmission Date: 20190205
  Serious: Yes (Congenital Anomaly, Other)
  Sender: FDA-Public Use
  Company Number: FR-AUROBINDO-AUR-APL-2018-051803

PATIENT

DRUGS (1)
  1. EFAVIRENZ. [Suspect]
     Active Substance: EFAVIRENZ
     Indication: MATERNAL EXPOSURE TIMING UNSPECIFIED
     Dosage: 600 MILLIGRAM
     Route: 064
     Dates: start: 20180417, end: 20180706

REACTIONS (2)
  - Foetal exposure during pregnancy [Unknown]
  - Kidney malformation [Not Recovered/Not Resolved]

NARRATIVE: CASE EVENT DATE: 20180905
